FAERS Safety Report 24359176 (Version 1)
Quarter: 2024Q3

REPORT INFORMATION
  Report Type: Spontaneous
  Country: CN (occurrence: CN)
  Receive Date: 20240924
  Receipt Date: 20240924
  Transmission Date: 20241017
  Serious: No
  Sender: Unknown Manufacturer
  Company Number: CN-ROCHE-3528206

PATIENT

DRUGS (3)
  1. GAVRETO [Suspect]
     Active Substance: PRALSETINIB
     Indication: Non-small cell lung cancer
  2. GAVRETO [Suspect]
     Active Substance: PRALSETINIB
     Dosage: 300 MILLIGRAM, QD
  3. GAVRETO [Suspect]
     Active Substance: PRALSETINIB
     Dosage: 200 MILLIGRAM, QD

REACTIONS (3)
  - Initial insomnia [Recovering/Resolving]
  - Dry mouth [Recovering/Resolving]
  - Thirst [Recovering/Resolving]
